FAERS Safety Report 5899708-0 (Version None)
Quarter: 2008Q3

REPORT INFORMATION
  Report Type: 
  Country: None (occurrence: None)
  Receive Date: 20080919
  Receipt Date: 20080603
  Transmission Date: 20090109
  Serious: No
  Sender: FDA-Public Use
  Company Number: US-WYE-H04320508

PATIENT
  Age: 43 Year
  Sex: Female
  Weight: 86.26 kg

DRUGS (4)
  1. PRISTIQ [Suspect]
     Indication: ANXIETY
     Dosage: 50 MG 1X PER 1 DAY, ORAL
     Route: 048
     Dates: start: 20080523, end: 20080603
  2. PRISTIQ [Suspect]
     Indication: DEPRESSION
     Dosage: 50 MG 1X PER 1 DAY, ORAL
     Route: 048
     Dates: start: 20080523, end: 20080603
  3. CELEXA [Suspect]
  4. LISINOPRIL/HYDROCHLOROTHIAZIDE (LISINOPRIL/HYDROCHLOROTHIAZIDE) [Concomitant]

REACTIONS (7)
  - DIARRHOEA [None]
  - DIZZINESS [None]
  - DRUG WITHDRAWAL SYNDROME [None]
  - HALLUCINATION [None]
  - HEADACHE [None]
  - PALPITATIONS [None]
  - TREMOR [None]
